FAERS Safety Report 16019377 (Version 4)
Quarter: 2019Q2

REPORT INFORMATION
  Report Type: Spontaneous
  Country: US (occurrence: US)
  Receive Date: 20190228
  Receipt Date: 20190415
  Transmission Date: 20190711
  Serious: Yes (Hospitalization)
  Sender: FDA-Public Use
  Company Number: US-ACTELION-A-US2019-186175

PATIENT
  Age: 58 Year
  Sex: Female

DRUGS (3)
  1. UPTRAVI [Suspect]
     Active Substance: SELEXIPAG
     Dosage: UNK
     Route: 048
  2. UPTRAVI [Suspect]
     Active Substance: SELEXIPAG
     Dosage: 200 MCG, BID
     Route: 048
     Dates: start: 20190402
  3. UPTRAVI [Suspect]
     Active Substance: SELEXIPAG
     Indication: PULMONARY ARTERIAL HYPERTENSION
     Dosage: 400 MCG, BID
     Route: 048
     Dates: start: 20181221

REACTIONS (9)
  - Erythema [Unknown]
  - Swelling [Unknown]
  - Generalised oedema [Unknown]
  - Nausea [Unknown]
  - Treatment noncompliance [Unknown]
  - Migraine [Unknown]
  - Flushing [Unknown]
  - Oxygen consumption increased [Unknown]
  - Pain [Unknown]

NARRATIVE: CASE EVENT DATE: 201902
